FAERS Safety Report 5022018-0 (Version None)
Quarter: 2006Q2

REPORT INFORMATION
  Report Type: 
  Country: None (occurrence: None)
  Receive Date: 20060609
  Receipt Date: 20060602
  Transmission Date: 20061013
  Serious: Yes (Hospitalization)
  Sender: FDA-Public Use
  Company Number: DE-SP-2006-01351

PATIENT
  Age: 82 Year
  Sex: Male
  Weight: 86 kg

DRUGS (11)
  1. IMMUCYST [Suspect]
     Indication: BLADDER CANCER
     Dosage: SUSPENSION, 50 ML
     Route: 043
     Dates: start: 20050502
  2. IMMUCYST [Suspect]
     Route: 043
     Dates: start: 20050509
  3. IMMUCYST [Suspect]
     Route: 043
     Dates: start: 20050517
  4. IMMUCYST [Suspect]
     Route: 043
     Dates: start: 20050523
  5. IMMUCYST [Suspect]
     Route: 043
     Dates: start: 20050530
  6. IMMUCYST [Suspect]
     Route: 043
     Dates: start: 20050606
  7. ALLOPURINOL [Concomitant]
  8. CAPTOPRIL [Concomitant]
  9. SIMVASTATIN [Concomitant]
  10. FELODIPINE [Concomitant]
  11. ASPIRIN [Concomitant]
     Dates: end: 20050725

REACTIONS (1)
  - CYSTITIS NONINFECTIVE [None]
